FAERS Safety Report 23366457 (Version 4)
Quarter: 2024Q1

REPORT INFORMATION
  Report Type: Spontaneous
  Country: CA (occurrence: CA)
  Receive Date: 20240104
  Receipt Date: 20240301
  Transmission Date: 20240410
  Serious: Yes (Other)
  Sender: FDA-Public Use
  Company Number: CA-PFIZER INC-202300430409

PATIENT
  Age: 81 Year
  Sex: Male
  Weight: 63.5 kg

DRUGS (8)
  1. VYNDAQEL [Suspect]
     Active Substance: TAFAMIDIS MEGLUMINE
     Indication: Cardiac amyloidosis
     Dosage: 80 MG, 1X/DAY (4X20 MG FOR 30 DAYS WITH 6 REPEATS)
     Route: 048
     Dates: start: 20230426
  2. VYNDAQEL [Suspect]
     Active Substance: TAFAMIDIS MEGLUMINE
     Dosage: 80 MG, 1X/DAY (4X20 MG FOR 30 DAYS WITH 6 REPEATS)
     Route: 048
  3. FUROSEMIDE [Concomitant]
     Active Substance: FUROSEMIDE
     Dosage: 40 MG, 1 TABLET BID
     Route: 048
  4. ENTRESTO [Concomitant]
     Active Substance: SACUBITRIL\VALSARTAN
     Dosage: 97.2/102.8, 2X/DAY (1 TAB BID )
     Route: 048
  5. INSPRA [Concomitant]
     Active Substance: EPLERENONE
     Dosage: 25 MG, 1 TABLET Q AM
     Route: 048
  6. JARDIANCE [Concomitant]
     Active Substance: EMPAGLIFLOZIN
     Dosage: 10 MG, 1X/DAY
     Route: 048
  7. IVABRADINE [Concomitant]
     Active Substance: IVABRADINE
     Dosage: 5 MG, 2X/DAY (1 TABLET BID)
     Route: 048
  8. BISOPROLOL [Concomitant]
     Active Substance: BISOPROLOL\BISOPROLOL FUMARATE
     Dosage: 5 MG, 2X/DAY, 1 TABLET BID
     Route: 048

REACTIONS (22)
  - Cardiac failure [Unknown]
  - Left ventricular hypertrophy [Unknown]
  - Ventricular hypokinesia [Unknown]
  - Right ventricular dysfunction [Unknown]
  - Immunodeficiency [Unknown]
  - Atrial enlargement [Unknown]
  - Mitral valve incompetence [Unknown]
  - Tricuspid valve incompetence [Unknown]
  - Primary immunodeficiency syndrome [Unknown]
  - Left ventricular failure [Unknown]
  - Arrhythmia [Unknown]
  - Amyloidosis [Unknown]
  - Disease progression [Unknown]
  - Aortic aneurysm [Unknown]
  - Dyspnoea [Unknown]
  - Dizziness [Unknown]
  - Fatigue [Unknown]
  - Aortic valve stenosis [Unknown]
  - Diastolic dysfunction [Unknown]
  - Weight decreased [Unknown]
  - Right ventricular systolic pressure decreased [Unknown]
  - Hypertension [Unknown]

NARRATIVE: CASE EVENT DATE: 20230101
